FAERS Safety Report 7478091-3 (Version None)
Quarter: 2011Q2

REPORT INFORMATION
  Report Type: 
  Country: None (occurrence: None)
  Receive Date: 20110511
  Receipt Date: 20110511
  Transmission Date: 20111010
  Serious: Yes (Other)
  Sender: FDA-Public Use
  Company Number: None

PATIENT
  Age: 43 Year
  Sex: Female
  Weight: 64.8644 kg

DRUGS (1)
  1. RESTASIS [Suspect]
     Indication: DRY EYE
     Dosage: 1 DROP 2X/DAY INTRAOCULAR
     Route: 031
     Dates: start: 20110204, end: 20110506

REACTIONS (6)
  - LOCAL SWELLING [None]
  - PRURITUS [None]
  - EYE SWELLING [None]
  - ERYTHEMA [None]
  - HYPERSENSITIVITY [None]
  - RASH [None]
